FAERS Safety Report 10267896 (Version 4)
Quarter: 2015Q1

REPORT INFORMATION
  Report Type: Spontaneous
  Country: TR (occurrence: TR)
  Receive Date: 20140630
  Receipt Date: 20150225
  Transmission Date: 20150720
  Serious: Yes (Death, Other)
  Sender: FDA-Public Use
  Company Number: TR-PFIZER INC-2014145836

PATIENT
  Age: 41 Year
  Sex: Male

DRUGS (3)
  1. ERAXIS [Suspect]
     Active Substance: ANIDULAFUNGIN
     Indication: SYSTEMIC CANDIDA
     Dosage: 100 MG, 1X/DAY
     Route: 042
     Dates: start: 201405, end: 20140522
  2. VANCOMYCIN [Concomitant]
     Active Substance: VANCOMYCIN
     Dosage: 500 MG, 4X/DAY
  3. INVANZ [Concomitant]
     Active Substance: ERTAPENEM SODIUM
     Dosage: 1 G, 1X/DAY

REACTIONS (3)
  - Sepsis [Fatal]
  - Condition aggravated [Fatal]
  - Thrombocytopenia [Not Recovered/Not Resolved]

NARRATIVE: CASE EVENT DATE: 20140522
